FAERS Safety Report 7272350-5 (Version None)
Quarter: 2011Q1

REPORT INFORMATION
  Report Type: 
  Country: None (occurrence: None)
  Receive Date: 20110203
  Receipt Date: 20110131
  Transmission Date: 20110831
  Serious: Yes (Death)
  Sender: FDA-Public Use
  Company Number: PHHY2010US69915

PATIENT
  Sex: Female

DRUGS (1)
  1. EXJADE [Suspect]
     Indication: CHRONIC MYELOID LEUKAEMIA
     Dosage: 1000 MG DAILY
     Route: 048
     Dates: start: 20100721

REACTIONS (4)
  - ACUTE LEUKAEMIA [None]
  - TERMINAL STATE [None]
  - DIARRHOEA [None]
  - CHRONIC MYELOID LEUKAEMIA [None]
